FAERS Safety Report 19173502 (Version 1)
Quarter: 2021Q2

REPORT INFORMATION
  Report Type: Spontaneous
  Country: US (occurrence: US)
  Receive Date: 20210422
  Receipt Date: 20210422
  Transmission Date: 20210717
  Serious: Yes (Death)
  Sender: FDA-Public Use
  Company Number: None

PATIENT
  Age: 29 Year
  Sex: Male
  Weight: 77 kg

DRUGS (2)
  1. ASPIRIN 325 MG DAILY [Concomitant]
     Dates: start: 20210331
  2. ENOXAPARIN [Suspect]
     Active Substance: ENOXAPARIN
     Indication: ACUTE MYOCARDIAL INFARCTION
     Dosage: ?          OTHER FREQUENCY:ONCE;?
     Route: 058
     Dates: start: 20210331

REACTIONS (4)
  - Adrenal haemorrhage [None]
  - Hypotension [None]
  - Shock haemorrhagic [None]
  - Retroperitoneal haemorrhage [None]

NARRATIVE: CASE EVENT DATE: 20210331
